FAERS Safety Report 9068885 (Version 2)
Quarter: 2014Q1

REPORT INFORMATION
  Report Type: Report from Study
  Country: NL (occurrence: NL)
  Receive Date: 20130128
  Receipt Date: 20140312
  Transmission Date: 20141002
  Serious: Yes (Death)
  Sender: FDA-Public Use
  Company Number: PHHY2013NL007793

PATIENT
  Sex: Female

DRUGS (8)
  1. ACLASTA [Suspect]
     Indication: OSTEOPOROSIS
     Dosage: 5 MG, YEARLY
     Route: 042
     Dates: start: 20110208
  2. AMOXICILLIN [Concomitant]
     Dosage: 750 MG, TID
     Dates: start: 20121130
  3. FLUCONAZOLE [Concomitant]
     Dosage: 200 MG, UNK
     Dates: start: 20121130
  4. NADROPARINE [Concomitant]
     Dosage: 5700 UKN, BID
     Dates: start: 20121109
  5. ATORVASTATIN [Concomitant]
     Dosage: 10 MG, QD
     Dates: start: 20080310
  6. ENALAPRIL [Concomitant]
     Dosage: 10 MG, QD
     Dates: start: 20080310
  7. PANTOPRAZOLE [Concomitant]
     Dosage: 40 MG, QD
     Dates: start: 20080310
  8. SIROLIMUS [Concomitant]
     Dosage: 2 MG, QD
     Dates: start: 20080310

REACTIONS (1)
  - Pneumonia [Fatal]
